FAERS Safety Report 18068388 (Version 3)
Quarter: 2020Q3

REPORT INFORMATION
  Report Type: Report from Study
  Country: CA (occurrence: CA)
  Receive Date: 20200724
  Receipt Date: 20200814
  Transmission Date: 20201103
  Serious: Yes (Other)
  Sender: FDA-Public Use
  Company Number: CA-ASTRAZENECA-2020SE89924

PATIENT
  Sex: Female

DRUGS (1)
  1. LYNPARZA [Suspect]
     Active Substance: OLAPARIB
     Indication: OVARIAN CANCER
     Route: 048
     Dates: start: 20191115

REACTIONS (7)
  - Incorrect product formulation administered [Recovering/Resolving]
  - Product use complaint [Unknown]
  - Product administration error [Unknown]
  - Retching [Unknown]
  - Product preparation issue [Unknown]
  - Foreign body in throat [Unknown]
  - Vomiting [Unknown]
